FAERS Safety Report 10786210 (Version 1)
Quarter: 2015Q1

REPORT INFORMATION
  Report Type: Spontaneous
  Country: JP (occurrence: JP)
  Receive Date: 20150211
  Receipt Date: 20150211
  Transmission Date: 20150721
  Serious: Yes (Other)
  Sender: FDA-Public Use
  Company Number: JP-IMPAX LABORATORIES, INC-2015-IPXL-00109

PATIENT
  Age: 58 Year
  Sex: Male

DRUGS (2)
  1. TEPRENONE [Concomitant]
     Active Substance: TEPRENONE
     Indication: GASTRIC DISORDER
     Dosage: 150 MG, DAILY
     Route: 065
  2. URSODIOL. [Suspect]
     Active Substance: URSODIOL
     Indication: CHOLELITHIASIS
     Dosage: 600 MG, DAILY
     Route: 065

REACTIONS (1)
  - Bile duct stone [Recovered/Resolved]
